FAERS Safety Report 11025121 (Version 1)
Quarter: 2015Q2

REPORT INFORMATION
  Report Type: Spontaneous
  Country: US (occurrence: None)
  Receive Date: 20150413
  Receipt Date: 20150413
  Transmission Date: 20150821
  Serious: No
  Sender: FDA-Public Use
  Company Number: None

PATIENT
  Age: 17 Year
  Sex: Female

DRUGS (2)
  1. TECFIDERA [Suspect]
     Active Substance: DIMETHYL FUMARATE
     Indication: MULTIPLE SCLEROSIS
     Dosage: 120 MG TWICE DAILY FOR DAYS ORAL
     Route: 048
     Dates: start: 20150220, end: 20150227
  2. TECFIDERA [Suspect]
     Active Substance: DIMETHYL FUMARATE
     Indication: MULTIPLE SCLEROSIS
     Route: 048
     Dates: start: 20150228, end: 20150330

REACTIONS (3)
  - Nausea [None]
  - Vomiting [None]
  - Abdominal pain [None]

NARRATIVE: CASE EVENT DATE: 20150330
